FAERS Safety Report 6133397-5 (Version None)
Quarter: 2009Q1

REPORT INFORMATION
  Report Type: 
  Country: None (occurrence: None)
  Receive Date: 20090326
  Receipt Date: 20090325
  Transmission Date: 20090719
  Serious: Yes (Hospitalization)
  Sender: FDA-Public Use
  Company Number: PHHO2004DE05262

PATIENT
  Sex: Female
  Weight: 62 kg

DRUGS (1)
  1. CGS 20267 T30748+ [Suspect]
     Indication: BREAST CANCER
     Dosage: 2.5 MG, QD
     Dates: start: 19990210, end: 20040210

REACTIONS (4)
  - ENDOMETRIAL CANCER [None]
  - HYSTERECTOMY [None]
  - SURGERY [None]
  - VAGINAL HAEMORRHAGE [None]
